FAERS Safety Report 6019522-5 (Version None)
Quarter: 2008Q4

REPORT INFORMATION
  Report Type: 
  Country: None (occurrence: None)
  Receive Date: 20081224
  Receipt Date: 20081217
  Transmission Date: 20090506
  Serious: Yes (Hospitalization)
  Sender: FDA-Public Use
  Company Number: BR-JNJCH-2008057959

PATIENT
  Age: 8 Year
  Sex: Male
  Weight: 32 kg

DRUGS (2)
  1. MYLANTA PLUS [Suspect]
     Indication: GASTROOESOPHAGEAL REFLUX DISEASE
     Dosage: TEXT:UNSPECIFIED
     Route: 048
  2. MYLANTA PLUS [Suspect]
     Dosage: TEXT:UNSPECIFIED
     Route: 048
     Dates: start: 20081201

REACTIONS (2)
  - ABDOMINAL PAIN [None]
  - WRONG DRUG ADMINISTERED [None]
